FAERS Safety Report 6524439-3 (Version None)
Quarter: 2010Q1

REPORT INFORMATION
  Report Type: 
  Country: None (occurrence: None)
  Receive Date: 20100104
  Receipt Date: 20091222
  Transmission Date: 20100710
  Serious: Yes (Other)
  Sender: FDA-Public Use
  Company Number: AT-RANBAXY-2009RR-29048

PATIENT
  Age: 27 Year
  Sex: Male

DRUGS (2)
  1. CEPHALOBENE 1000MG [Suspect]
     Indication: INFECTION
     Dosage: 500 MG, TID
     Route: 048
     Dates: start: 20090917
  2. METHOTREXATE [Suspect]
     Indication: ARTHRITIS
     Dosage: 15 MG, 1/WEEK
     Route: 048

REACTIONS (1)
  - PARTIAL SEIZURES [None]
